FAERS Safety Report 11392473 (Version 1)
Quarter: 2015Q3

REPORT INFORMATION
  Report Type: Report from Study
  Country: FR (occurrence: FR)
  Receive Date: 20150818
  Receipt Date: 20150818
  Transmission Date: 20151125
  Serious: Yes (Hospitalization)
  Sender: FDA-Public Use
  Company Number: PHHY2015FR099318

PATIENT
  Age: 36 Year
  Sex: Female

DRUGS (2)
  1. GILENYA [Suspect]
     Active Substance: FINGOLIMOD HYDROCHLORIDE
     Indication: RELAPSING-REMITTING MULTIPLE SCLEROSIS
     Dosage: 0.5 MG, QD
     Route: 048
     Dates: start: 20150422, end: 20150610
  2. PAROXETINE [Concomitant]
     Active Substance: PAROXETINE\PAROXETINE HYDROCHLORIDE
     Indication: PRODUCT USED FOR UNKNOWN INDICATION
     Dosage: 20 MG, QD
     Route: 065

REACTIONS (7)
  - Abnormal behaviour [Unknown]
  - Anterograde amnesia [Unknown]
  - Transient global amnesia [Recovered/Resolved]
  - Drug tolerance decreased [Unknown]
  - Gait spastic [Unknown]
  - Asthenia [Unknown]
  - Memory impairment [Unknown]

NARRATIVE: CASE EVENT DATE: 20150608
